FAERS Safety Report 10427882 (Version 4)
Quarter: 2014Q4

REPORT INFORMATION
  Report Type: Spontaneous
  Country: IT (occurrence: IT)
  Receive Date: 20140903
  Receipt Date: 20141019
  Transmission Date: 20150528
  Serious: Yes (Hospitalization, Other)
  Sender: FDA-Public Use
  Company Number: IT-BRISTOL-MYERS SQUIBB COMPANY-21355672

PATIENT
  Age: 84 Year
  Sex: Female

DRUGS (4)
  1. COUMADIN [Suspect]
     Active Substance: WARFARIN SODIUM
     Indication: ATRIAL FIBRILLATION
     Route: 048
     Dates: end: 20140830
  2. IGROTON [Concomitant]
     Active Substance: CHLORTHALIDONE
     Indication: DIURETIC THERAPY
  3. LANOXIN [Concomitant]
     Active Substance: DIGOXIN
  4. AUGMENTIN [Concomitant]
     Active Substance: AMOXICILLIN\CLAVULANATE POTASSIUM

REACTIONS (2)
  - Cerebellar haemorrhage [Recovering/Resolving]
  - Facial bones fracture [Unknown]

NARRATIVE: CASE EVENT DATE: 20140830
